APPROVED DRUG PRODUCT: MEMANTINE HYDROCHLORIDE
Active Ingredient: MEMANTINE HYDROCHLORIDE
Strength: 7MG
Dosage Form/Route: CAPSULE, EXTENDED RELEASE;ORAL
Application: A213985 | Product #001 | TE Code: AB
Applicant: VITRUVIAS THERAPEUTICS INC
Approved: Oct 11, 2022 | RLD: No | RS: No | Type: RX